FAERS Safety Report 23773521 (Version 1)
Quarter: 2024Q2

REPORT INFORMATION
  Report Type: Spontaneous
  Country: US (occurrence: None)
  Receive Date: 20240422
  Receipt Date: 20240422
  Transmission Date: 20240715
  Serious: Yes (Hospitalization)
  Sender: FDA-Public Use
  Company Number: None

PATIENT
  Age: 20 Year
  Sex: Male

DRUGS (1)
  1. KYMRIAH [Suspect]
     Active Substance: TISAGENLECLEUCEL
     Indication: Precursor B-lymphoblastic lymphoma
     Dates: start: 20231024, end: 20231024

REACTIONS (7)
  - Back pain [None]
  - Arthritis bacterial [None]
  - Sacroiliac joint dysfunction [None]
  - Osteomyelitis [None]
  - Psoas abscess [None]
  - Abscess limb [None]
  - Paraspinal abscess [None]

NARRATIVE: CASE EVENT DATE: 20231110
